FAERS Safety Report 21279730 (Version 1)
Quarter: 2022Q3

REPORT INFORMATION
  Report Type: Spontaneous
  Country: US (occurrence: US)
  Receive Date: 20220901
  Receipt Date: 20220901
  Transmission Date: 20221027
  Serious: No
  Sender: FDA-Public Use
  Company Number: US-PERRIGO-22US008922

PATIENT
  Age: 78 Year
  Sex: Female
  Weight: 68.027 kg

DRUGS (9)
  1. TRIAMCINOLONE ACETONIDE [Suspect]
     Active Substance: TRIAMCINOLONE ACETONIDE
     Indication: Ear discomfort
     Dosage: 0.11 MG IN EACH NOSTRIL, QD
     Route: 045
     Dates: start: 20220615, end: 20220616
  2. TRIAMCINOLONE ACETONIDE [Suspect]
     Active Substance: TRIAMCINOLONE ACETONIDE
     Dosage: 0.11 MG IN EACH NOSTRIL, QD
     Route: 045
     Dates: start: 20220619, end: 20220622
  3. LEVOTHYROXINE [Concomitant]
     Active Substance: LEVOTHYROXINE
     Indication: Hypothyroidism
     Dosage: 88 MG, UNK
     Route: 065
     Dates: start: 1992
  4. VITAMIN D NOS [Concomitant]
     Active Substance: VITAMIN D NOS
     Indication: Osteopenia
     Dosage: 2000IU
     Route: 065
     Dates: start: 2014
  5. PYRIDOXINE HYDROCHLORIDE [Concomitant]
     Active Substance: PYRIDOXINE HYDROCHLORIDE
     Indication: Supplementation therapy
     Dosage: UNK
     Route: 065
     Dates: start: 2019
  6. VITAMIN B12 [Concomitant]
     Active Substance: CYANOCOBALAMIN
     Indication: Supplementation therapy
     Dosage: UNK
     Route: 065
     Dates: start: 2019
  7. VITAMIN B12 [Concomitant]
     Active Substance: CYANOCOBALAMIN
     Dosage: UNK
  8. ZINC [Concomitant]
     Active Substance: ZINC
     Indication: Supplementation therapy
     Dosage: UNK
     Route: 065
     Dates: start: 2019
  9. CHONDROITIN SULFATE (BOVINE)\GLUCOSAMINE HYDROCHLORIDE [Concomitant]
     Active Substance: CHONDROITIN SULFATE (BOVINE)\GLUCOSAMINE HYDROCHLORIDE
     Indication: Routine health maintenance
     Dosage: UNK
     Route: 065
     Dates: start: 2019

REACTIONS (3)
  - Headache [Recovered/Resolved]
  - Nasal dryness [Unknown]
  - Drug ineffective for unapproved indication [Unknown]

NARRATIVE: CASE EVENT DATE: 20220601
